FAERS Safety Report 8581724-1 (Version None)
Quarter: 2012Q3

REPORT INFORMATION
  Report Type: 
  Country: None (occurrence: None)
  Receive Date: 20120801
  Receipt Date: 20120801
  Transmission Date: 20120928
  Serious: Yes (Hospitalization)
  Sender: FDA-Public Use
  Company Number: None

PATIENT
  Age: 43 Year
  Sex: Male
  Weight: 73.4827 kg

DRUGS (2)
  1. LITHIUM CARBONATE [Suspect]
     Indication: MOOD ALTERED
     Dosage: 300MG BID PO
     Route: 048
     Dates: start: 20110524, end: 20120702
  2. LITHIUM CARBONATE [Suspect]
     Indication: MOOD ALTERED
     Dosage: 150MG ONCE DAILY PO
     Route: 048
     Dates: start: 20111024, end: 20120702

REACTIONS (5)
  - MENTAL STATUS CHANGES [None]
  - CONVULSION [None]
  - ABNORMAL BEHAVIOUR [None]
  - LACERATION [None]
  - FALL [None]
